FAERS Safety Report 24904740 (Version 1)
Quarter: 2025Q1

REPORT INFORMATION
  Report Type: Spontaneous
  Country: JP (occurrence: JP)
  Receive Date: 20250130
  Receipt Date: 20250130
  Transmission Date: 20250408
  Serious: Yes (Other)
  Sender: GE HEALTHCARE
  Company Number: JP-GEHPL-2025JSU000931AA

PATIENT
  Age: 60 Year
  Sex: Male

DRUGS (3)
  1. OMNIPAQUE [Suspect]
     Active Substance: IOHEXOL
     Indication: Angiocardiogram
     Route: 013
     Dates: start: 20250117, end: 20250117
  2. METOPROLOL [Concomitant]
     Active Substance: METOPROLOL
     Route: 065
  3. NITROGLYCERIN [Concomitant]
     Active Substance: NITROGLYCERIN
     Route: 065

REACTIONS (7)
  - Feeling abnormal [Recovering/Resolving]
  - Sneezing [Recovered/Resolved]
  - Pruritus [Recovered/Resolved]
  - Erythema [Recovered/Resolved]
  - Nausea [Recovered/Resolved]
  - Heart rate decreased [Recovering/Resolving]
  - Blood pressure decreased [Recovered/Resolved]

NARRATIVE: CASE EVENT DATE: 20250117
